FAERS Safety Report 5903192-8 (Version None)
Quarter: 2008Q3

REPORT INFORMATION
  Report Type: 
  Country: None (occurrence: None)
  Receive Date: 20080929
  Receipt Date: 20080929
  Transmission Date: 20090109
  Serious: Yes (Hospitalization)
  Sender: FDA-Public Use
  Company Number: None

PATIENT
  Age: 81 Year
  Sex: Female

DRUGS (7)
  1. IRESSA [Suspect]
     Indication: SQUAMOUS CELL CARCINOMA
     Dosage: 500 MG PO QD 750 MG PO QD
     Dates: start: 20080304, end: 20080401
  2. IRESSA [Suspect]
     Indication: SQUAMOUS CELL CARCINOMA
     Dosage: 500 MG PO QD 750 MG PO QD
     Dates: start: 20080402
  3. MULTI-VITAMIN [Concomitant]
  4. AMBIEN [Concomitant]
  5. MINOCYCLINE HCL [Concomitant]
  6. ROXICET [Concomitant]
  7. CLINDAMYCIN LOTION [Concomitant]

REACTIONS (8)
  - ABSCESS [None]
  - BACTERIAL INFECTION [None]
  - CELLULITIS [None]
  - CULTURE WOUND [None]
  - SERRATIA INFECTION [None]
  - SKIN TOXICITY [None]
  - SOFT TISSUE INFECTION [None]
  - ULCER [None]
